FAERS Safety Report 7571807-7 (Version None)
Quarter: 2011Q2

REPORT INFORMATION
  Report Type: 
  Country: None (occurrence: None)
  Receive Date: 20110624
  Receipt Date: 20110613
  Transmission Date: 20111010
  Serious: Yes (Hospitalization, Other)
  Sender: FDA-Public Use
  Company Number: CA-ELI_LILLY_AND_COMPANY-CA201106003771

PATIENT
  Age: 79 Year
  Sex: Female

DRUGS (5)
  1. RAMIPRIL [Concomitant]
  2. FORTEO [Suspect]
     Indication: OSTEOPOROSIS
     Dosage: 20 UG, QD
     Route: 058
     Dates: start: 20110222
  3. MORPHINE [Concomitant]
  4. CALCIUM CARBONATE [Concomitant]
  5. VITAMIN D [Concomitant]

REACTIONS (4)
  - FALL [None]
  - HIP FRACTURE [None]
  - GOUT [None]
  - INFLUENZA [None]
